FAERS Safety Report 6247941-0 (Version None)
Quarter: 2009Q2

REPORT INFORMATION
  Report Type: 
  Country: None (occurrence: None)
  Receive Date: 20090626
  Receipt Date: 20090622
  Transmission Date: 20091009
  Serious: Yes (Hospitalization)
  Sender: FDA-Public Use
  Company Number: US-AMGEN-US349652

PATIENT
  Sex: Female
  Weight: 64 kg

DRUGS (14)
  1. NPLATE [Suspect]
     Indication: IDIOPATHIC THROMBOCYTOPENIC PURPURA
     Route: 058
     Dates: start: 20090601
  2. ALLEGRA [Concomitant]
     Dates: start: 20050101
  3. DESERIL [Concomitant]
  4. LIPITOR [Concomitant]
     Dates: start: 20070101
  5. TRAZODONE HCL [Concomitant]
     Dates: start: 20070101
  6. VERAPAMIL [Concomitant]
     Dates: start: 20080101
  7. ZALEPLON [Concomitant]
  8. MULTI-VITAMINS [Concomitant]
  9. FLUTICASONE [Concomitant]
     Dates: start: 20090101
  10. OMEPRAZOLE [Concomitant]
  11. PREVACID [Concomitant]
     Dates: start: 20090601
  12. LEXAPRO [Concomitant]
     Dates: start: 20080101
  13. WINRHO [Concomitant]
  14. PLATELETS [Concomitant]

REACTIONS (2)
  - FAECES DISCOLOURED [None]
  - GASTROINTESTINAL HAEMORRHAGE [None]
